FAERS Safety Report 19752748 (Version 1)
Quarter: 2021Q3

REPORT INFORMATION
  Report Type: Spontaneous
  Country: QA (occurrence: QA)
  Receive Date: 20210827
  Receipt Date: 20210827
  Transmission Date: 20211014
  Serious: Yes (Other)
  Sender: FDA-Public Use
  Company Number: QA-JNJFOC-20210841911

PATIENT
  Age: 54 Year
  Sex: Male

DRUGS (4)
  1. FLUCONAZOLE. [Concomitant]
     Active Substance: FLUCONAZOLE
     Route: 048
  2. PREDNISOLONE. [Concomitant]
     Active Substance: PREDNISOLONE
  3. METHOTREXATE. [Concomitant]
     Active Substance: METHOTREXATE
  4. REMICADE [Suspect]
     Active Substance: INFLIXIMAB
     Indication: CROHN^S DISEASE
     Route: 042
     Dates: start: 201907

REACTIONS (1)
  - Pneumonia cryptococcal [Recovered/Resolved]
